FAERS Safety Report 6547322-6 (Version None)
Quarter: 2010Q1

REPORT INFORMATION
  Report Type: 
  Country: None (occurrence: None)
  Receive Date: 20100122
  Receipt Date: 20100113
  Transmission Date: 20100710
  Serious: Yes (Other)
  Sender: FDA-Public Use
  Company Number: US-KINGPHARMUSA00001-K201000050

PATIENT

DRUGS (1)
  1. EMBEDA [Suspect]
     Dosage: UNK

REACTIONS (2)
  - BLOOD ELECTROLYTES ABNORMAL [None]
  - ELECTROCARDIOGRAM QT PROLONGED [None]
